FAERS Safety Report 23952729 (Version 2)
Quarter: 2024Q2

REPORT INFORMATION
  Report Type: Spontaneous
  Country: CN (occurrence: CN)
  Receive Date: 20240607
  Receipt Date: 20240614
  Transmission Date: 20240715
  Serious: Yes (Other)
  Sender: FDA-Public Use
  Company Number: CN-PFIZER INC-PV202400074179

PATIENT
  Age: 31 Year
  Sex: Female
  Weight: 61.5 kg

DRUGS (3)
  1. ZYVOX [Suspect]
     Active Substance: LINEZOLID
     Indication: Bacteraemia
     Dosage: 300 ML, 2X/DAY, EVERY 12 HOURS
     Route: 041
     Dates: start: 20240521, end: 20240528
  2. IMIPENEM AND CILASTATIN SODIUM [Suspect]
     Active Substance: CILASTATIN SODIUM\IMIPENEM
     Indication: Bacteraemia
     Dosage: 2 G, 3X/DAY, EVERY 8 HOURS
     Route: 041
     Dates: start: 20240520, end: 20240528
  3. SODIUM CHLORIDE [Concomitant]
     Active Substance: SODIUM CHLORIDE
     Indication: Medication dilution
     Dosage: 100 MG, 3X/DAY, EVERY 8 HOURS
     Route: 041
     Dates: start: 20240520, end: 20240528

REACTIONS (1)
  - Platelet count increased [Recovering/Resolving]

NARRATIVE: CASE EVENT DATE: 20240524
